FAERS Safety Report 23265935 (Version 3)
Quarter: 2023Q4

REPORT INFORMATION
  Report Type: Spontaneous
  Country: JP (occurrence: JP)
  Receive Date: 20231206
  Receipt Date: 20231219
  Transmission Date: 20240110
  Serious: Yes (Other)
  Sender: FDA-Public Use
  Company Number: JP-GSKJP-JP2023JPN139223

PATIENT
  Sex: Male

DRUGS (2)
  1. BOTULINUM TOXIN TYPE A [Suspect]
     Active Substance: BOTULINUM TOXIN TYPE A
     Indication: Hypertonic bladder
     Dosage: TIME INTERVAL: AS NECESSARY: DOSE STRENGTH: 100 U
     Route: 030
     Dates: start: 20200526, end: 20200526
  2. MIRABEGRON [Concomitant]
     Active Substance: MIRABEGRON
     Indication: Hypertonic bladder
     Dosage: 50 MG, QD
     Route: 048
     Dates: start: 20150803

REACTIONS (3)
  - Urinary retention [Recovering/Resolving]
  - Abdominal pain lower [Recovered/Resolved]
  - Dysuria [Recovering/Resolving]

NARRATIVE: CASE EVENT DATE: 20200531
